FAERS Safety Report 9367122 (Version 1)
Quarter: 2013Q2

REPORT INFORMATION
  Report Type: Report from Study
  Country: US (occurrence: US)
  Receive Date: 20130625
  Receipt Date: 20130625
  Transmission Date: 20140414
  Serious: Yes (Death, Hospitalization)
  Sender: FDA-Public Use
  Company Number: US-TEVA-408664USA

PATIENT
  Age: 47 Year
  Sex: Female

DRUGS (30)
  1. CLOZAPINE [Suspect]
     Indication: SCHIZOAFFECTIVE DISORDER
     Route: 048
  2. BENAZEPRIL W/HYDROCHLOROTHIAZIDE [Concomitant]
     Dosage: 10 MILLIGRAM DAILY;
     Route: 065
  3. CYMBALTA [Concomitant]
     Dosage: 120 MILLIGRAM DAILY;
     Route: 065
  4. XANAX [Concomitant]
     Dosage: .25 MILLIGRAM DAILY;
     Route: 065
  5. AMITRIPTYLINE [Concomitant]
     Dosage: 30 MILLIGRAM DAILY;
     Route: 065
  6. DETROL LA [Concomitant]
     Dosage: 4 MILLIGRAM DAILY;
     Route: 065
  7. ULORIC [Concomitant]
     Dosage: 80 MILLIGRAM DAILY;
     Route: 065
  8. SOMA [Concomitant]
     Dosage: 700 MILLIGRAM DAILY;
     Route: 065
  9. ISOSORBIDE [Concomitant]
     Dosage: 30 MILLIGRAM DAILY;
     Route: 065
  10. MECLIZINE [Concomitant]
     Dosage: 37.5 MILLIGRAM DAILY;
     Route: 065
  11. SINGULAIR [Concomitant]
     Dosage: 10 MILLIGRAM DAILY; HS
     Route: 065
  12. ZOLPIDEM [Concomitant]
     Dosage: 6.25 MILLIGRAM DAILY; HS
     Route: 065
  13. AMOX TR-K CLV [Concomitant]
     Dosage: 875/125
     Route: 065
  14. TRAMADOL [Concomitant]
     Route: 065
  15. ACETAMINOPHEN [Concomitant]
     Route: 065
  16. PROMETHAZINE [Concomitant]
     Dosage: 12.5
     Route: 065
  17. VISTARIL [Concomitant]
     Dosage: 150 MILLIGRAM DAILY;
     Route: 065
  18. LASIX [Concomitant]
     Dosage: 20 MILLIGRAM DAILY;
     Route: 065
  19. GI COCKTAIL [Concomitant]
     Route: 065
  20. PRO-AIR [Concomitant]
     Route: 055
  21. BENZTROPINE MESYLATE [Concomitant]
     Dosage: 4 MILLIGRAM DAILY;
     Route: 065
  22. ADVAIR [Concomitant]
     Route: 055
  23. CIPRO [Concomitant]
     Route: 065
  24. IMIPRAMINE [Concomitant]
     Dosage: 50 MILLIGRAM DAILY;
     Route: 065
  25. TRI-SPRINTEC [Concomitant]
     Route: 065
  26. VITAMINS [Concomitant]
     Route: 065
  27. CALCIUM [Concomitant]
     Route: 065
  28. ZINC [Concomitant]
     Route: 065
  29. TUSSIN DM [Concomitant]
     Indication: COUGH
     Route: 065
  30. ACID REDUCER [Concomitant]
     Route: 065

REACTIONS (3)
  - Pneumonia [Fatal]
  - Dystonia [Fatal]
  - Tardive dyskinesia [Fatal]
